FAERS Safety Report 4737050-1 (Version None)
Quarter: 2005Q3

REPORT INFORMATION
  Report Type: 
  Country: None (occurrence: None)
  Receive Date: 20050804
  Receipt Date: 20050722
  Transmission Date: 20060218
  Serious: Yes (Hospitalization)
  Sender: FDA-Public Use
  Company Number: HQWYE524126JUL05

PATIENT
  Age: 80 Year
  Sex: Female

DRUGS (3)
  1. TAZONAM (PIPERACILLIN/TAZOBACTAM, INJECTION) [Suspect]
     Indication: SEPSIS
     Dosage: 3 X 4.5 GRAMS
  2. AUGMENTIN [Concomitant]
  3. ANAEROBEX (METRONIDAZOLE) [Concomitant]

REACTIONS (6)
  - CONCOMITANT DISEASE PROGRESSION [None]
  - FUNGAL INFECTION [None]
  - MULTI-ORGAN FAILURE [None]
  - PNEUMONIA [None]
  - RENAL FAILURE ACUTE [None]
  - STAPHYLOCOCCAL INFECTION [None]
